FAERS Safety Report 4511740-8 (Version None)
Quarter: 2004Q4

REPORT INFORMATION
  Report Type: 
  Country: None (occurrence: None)
  Receive Date: 20041123
  Receipt Date: 20041123
  Transmission Date: 20050328
  Serious: Yes (Other)
  Sender: FDA-Public Use
  Company Number: None

PATIENT
  Age: 45 Year
  Sex: Male
  Weight: 71.7 kg

DRUGS (4)
  1. ATENOLOL [Suspect]
  2. LISINOPRIL [Concomitant]
  3. HYDROCHLOROTHIAZIDE [Concomitant]
  4. COLESTIPOL HCL [Concomitant]

REACTIONS (1)
  - TEMPERATURE INTOLERANCE [None]
